FAERS Safety Report 20239019 (Version 2)
Quarter: 2022Q1

REPORT INFORMATION
  Report Type: Spontaneous
  Country: US (occurrence: None)
  Receive Date: 20211228
  Receipt Date: 20220125
  Transmission Date: 20220424
  Serious: No
  Sender: FDA-Public Use
  Company Number: 2021A861406

PATIENT
  Age: 76 Year
  Sex: Female
  Weight: 95.3 kg

DRUGS (1)
  1. SYMBICORT [Suspect]
     Active Substance: BUDESONIDE\FORMOTEROL FUMARATE DIHYDRATE
     Indication: Asthma
     Dosage: 160/4.5 MCG , TWO TIMES A DAY
     Route: 055
     Dates: start: 2005

REACTIONS (5)
  - Pain in extremity [Not Recovered/Not Resolved]
  - Hypoacusis [Unknown]
  - Wrong technique in device usage process [Not Recovered/Not Resolved]
  - Intentional device misuse [Not Recovered/Not Resolved]
  - Device delivery system issue [Unknown]

NARRATIVE: CASE EVENT DATE: 20200101
